FAERS Safety Report 5267973-9 (Version None)
Quarter: 2007Q1

REPORT INFORMATION
  Report Type: 
  Country: None (occurrence: None)
  Receive Date: 20061211
  Receipt Date: 20060817
  Transmission Date: 20070707
  Serious: Yes (Other)
  Sender: FDA-Public Use
  Company Number: ENTC2006-0243

PATIENT
  Age: 60 Year
  Sex: Female

DRUGS (1)
  1. STALEVO (TABLET) (LEVODOPA, CARBIDOPA, ENTACAPONE) [Suspect]
     Indication: PARKINSON'S DISEASE
     Dosage: 450 MG, 3 IN 1 D, ORAL
     Route: 048
     Dates: start: 20050101

REACTIONS (2)
  - ASTHENIA [None]
  - HYPOTENSION [None]
